FAERS Safety Report 7283206-6 (Version None)
Quarter: 2011Q1

REPORT INFORMATION
  Report Type: 
  Country: None (occurrence: None)
  Receive Date: 20110209
  Receipt Date: 20110127
  Transmission Date: 20110831
  Serious: Yes (Other)
  Sender: FDA-Public Use
  Company Number: PHHY2009AU52184

PATIENT
  Sex: Male
  Weight: 80 kg

DRUGS (7)
  1. TRIPRIM [Concomitant]
     Indication: ORCHITIS
     Dosage: 300 MG, UNK
     Route: 048
     Dates: start: 20091027, end: 20091101
  2. LAMISIL [Suspect]
     Indication: ONYCHOMYCOSIS
     Dosage: 250 MG, UNK
     Route: 048
     Dates: start: 20090914
  3. LAMISIL [Suspect]
     Indication: NAIL INFECTION
     Dosage: 1 DF, UNK
  4. LAMISIL [Suspect]
     Dosage: 250 MG, UNK
     Dates: end: 20100801
  5. FISH OIL [Concomitant]
     Route: 048
  6. INNER HEALTH POWDER [Concomitant]
  7. ST. JOHN'S WORT [Concomitant]

REACTIONS (18)
  - MENTAL DISORDER [None]
  - ARTHRALGIA [None]
  - DYSPEPSIA [None]
  - ANXIETY [None]
  - DISTURBANCE IN ATTENTION [None]
  - PANIC ATTACK [None]
  - ABDOMINAL DISCOMFORT [None]
  - INSOMNIA [None]
  - DEPRESSION [None]
  - PAIN IN EXTREMITY [None]
  - SUICIDAL IDEATION [None]
  - NAUSEA [None]
  - GASTRIC DISORDER [None]
  - DYSGEUSIA [None]
  - FEELING ABNORMAL [None]
  - DECREASED APPETITE [None]
  - ERUCTATION [None]
  - DRY MOUTH [None]
